FAERS Safety Report 19185780 (Version 3)
Quarter: 2021Q3

REPORT INFORMATION
  Report Type: Not Available
  Country: US (occurrence: US)
  Receive Date: 20210427
  Receipt Date: 20210720
  Transmission Date: 20211014
  Serious: No
  Sender: FDA-Public Use
  Company Number: US-PHARMING-PHAUS2021000210

PATIENT

DRUGS (3)
  1. RUCONEST [Suspect]
     Active Substance: HUMAN C1-ESTERASE INHIBITOR
     Dosage: 3500 IU, WEEKLY PRN
     Route: 042
     Dates: start: 20180417
  2. RUCONEST [Suspect]
     Active Substance: HUMAN C1-ESTERASE INHIBITOR
     Indication: HEREDITARY ANGIOEDEMA
     Dosage: 3500 IU, WEEKLY PRN
     Route: 042
     Dates: start: 20180417
  3. HAEGARDA [Concomitant]
     Active Substance: HUMAN C1-ESTERASE INHIBITOR
     Indication: PRODUCT USED FOR UNKNOWN INDICATION

REACTIONS (1)
  - No adverse event [Unknown]
